FAERS Safety Report 10277510 (Version 2)
Quarter: 2014Q3

REPORT INFORMATION
  Report Type: Report from Study
  Country: US (occurrence: US)
  Receive Date: 20140703
  Receipt Date: 20140707
  Transmission Date: 20150326
  Serious: Yes (Hospitalization, Other)
  Sender: FDA-Public Use
  Company Number: US-ABBVIE-14P-163-1254188-00

PATIENT
  Age: 52 Year
  Sex: Male
  Weight: 59.02 kg

DRUGS (10)
  1. HUMIRA [Suspect]
     Active Substance: ADALIMUMAB
     Indication: CROHN^S DISEASE
     Dates: start: 201302
  2. VITAMIN D [Concomitant]
     Active Substance: CHOLECALCIFEROL
     Indication: VITAMIN D DECREASED
     Route: 048
  3. VITAMIN B12 [Concomitant]
     Active Substance: CYANOCOBALAMIN
     Indication: VITAMIN B COMPLEX DEFICIENCY
     Route: 050
  4. HUMIRA [Suspect]
     Active Substance: ADALIMUMAB
     Dates: start: 201405
  5. CHOLESTIPOL [Concomitant]
     Indication: CROHN^S DISEASE
     Route: 048
  6. DIAZEPAM. [Concomitant]
     Active Substance: DIAZEPAM
     Indication: ANXIETY
     Dosage: AT BEDTIME
     Route: 048
  7. OXYCODONE [Concomitant]
     Active Substance: OXYCODONE
     Indication: PAIN
     Route: 048
  8. JALYN [Concomitant]
     Active Substance: DUTASTERIDE\TAMSULOSIN HYDROCHLORIDE
     Indication: BLADDER DISORDER
     Dosage: 0.5-0.4 MG DAILY
     Route: 048
  9. AXIRON [Concomitant]
     Active Substance: TESTOSTERONE
     Indication: BLOOD TESTOSTERONE DECREASED
     Dosage: APPLY 2 PUMPS DAILY
  10. AMBIEN [Concomitant]
     Active Substance: ZOLPIDEM TARTRATE
     Indication: INSOMNIA
     Dosage: 1-2 TABLETS AT BEDTIME
     Route: 048

REACTIONS (13)
  - Abdominal pain [Not Recovered/Not Resolved]
  - Gallbladder abscess [Unknown]
  - Injection site papule [Unknown]
  - Injection site scar [Unknown]
  - Inflammation [Not Recovered/Not Resolved]
  - Appendicitis [Unknown]
  - Injection site pain [Recovered/Resolved]
  - Small intestinal perforation [Unknown]
  - Injection site haemorrhage [Unknown]
  - Small intestinal resection [Unknown]
  - Intestinal stenosis [Not Recovered/Not Resolved]
  - Incorrect dose administered [Unknown]
  - Device issue [Unknown]

NARRATIVE: CASE EVENT DATE: 201307
